FAERS Safety Report 24869876 (Version 1)
Quarter: 2025Q1

REPORT INFORMATION
  Report Type: Spontaneous
  Country: US (occurrence: None)
  Receive Date: 20250120
  Receipt Date: 20250120
  Transmission Date: 20250409
  Serious: Yes (Disabling)
  Sender: FDA-CTU
  Company Number: None

PATIENT
  Age: 42 Year
  Sex: Female
  Weight: 101.25 kg

DRUGS (11)
  1. PHENTERMINE [Suspect]
     Active Substance: PHENTERMINE
     Indication: Decreased appetite
     Route: 048
     Dates: start: 20241104, end: 20241210
  2. PHENTERMINE [Suspect]
     Active Substance: PHENTERMINE
     Indication: Weight decreased
  3. TOPIRAMATE [Suspect]
     Active Substance: TOPIRAMATE
     Indication: Decreased appetite
     Dates: start: 20241104, end: 20241210
  4. TOPIRAMATE [Suspect]
     Active Substance: TOPIRAMATE
     Indication: Weight decreased
  5. LISINOPRIL [Concomitant]
     Active Substance: LISINOPRIL
  6. FLUOXETINE [Concomitant]
     Active Substance: FLUOXETINE HYDROCHLORIDE
  7. FIBER THERAPY (CALCIUM POLYCARBOPHIL) [Concomitant]
     Active Substance: CALCIUM POLYCARBOPHIL
  8. multi-vitamin gummies [Concomitant]
  9. ZINC [Concomitant]
     Active Substance: ZINC
  10. IRON [Concomitant]
     Active Substance: IRON
  11. VITAMIN D [Concomitant]
     Active Substance: VITAMIN D NOS

REACTIONS (5)
  - Arthralgia [None]
  - Eructation [None]
  - Rectal haemorrhage [None]
  - Haemorrhoids [None]
  - Adverse drug reaction [None]

NARRATIVE: CASE EVENT DATE: 20241107
